FAERS Safety Report 8514457-8 (Version None)
Quarter: 2012Q2

REPORT INFORMATION
  Report Type: 
  Country: None (occurrence: None)
  Receive Date: 20120406
  Receipt Date: 20100614
  Transmission Date: 20120825
  Serious: Yes (Other)
  Sender: FDA-Public Use
  Company Number: PHHY2010US36628

PATIENT
  Age: 48 Year
  Sex: Female
  Weight: 47.7 kg

DRUGS (6)
  1. ASPIRIN [Concomitant]
  2. ANTICOAGULATNS (ANTICOAGULANTS) [Concomitant]
  3. TASIGNA [Suspect]
     Indication: NEOPLASM
     Dosage: 200 MG, 2 BID, ORAL
     Route: 048
     Dates: start: 20080812
  4. METOPROLOL TARTRATE [Concomitant]
  5. PLATELET AGGREGATION INHIBITORS (NOT INGREADIENT/SUBSTANCES) [Concomitant]
  6. SIMVASTATIN [Concomitant]

REACTIONS (1)
  - PLATELET COUNT DECREASED [None]
